FAERS Safety Report 4463926-9 (Version None)
Quarter: 2004Q3

REPORT INFORMATION
  Report Type: 
  Country: None (occurrence: None)
  Receive Date: 20040929
  Receipt Date: 20040913
  Transmission Date: 20050211
  Serious: Yes (Hospitalization)
  Sender: FDA-Public Use
  Company Number: JP_040904350

PATIENT
  Age: 19 Year
  Sex: Female
  Weight: 33 kg

DRUGS (2)
  1. ZYPREXA [Suspect]
     Dosage: 10 DSG FORM DAY
     Dates: start: 20040817, end: 20040817
  2. TEGRETOL [Concomitant]

REACTIONS (4)
  - DEPRESSED LEVEL OF CONSCIOUSNESS [None]
  - DRUG TOXICITY [None]
  - INTENTIONAL OVERDOSE [None]
  - SUICIDE ATTEMPT [None]
